FAERS Safety Report 16898529 (Version 1)
Quarter: 2019Q4

REPORT INFORMATION
  Report Type: Spontaneous
  Country: US (occurrence: US)
  Receive Date: 20190815
  Receipt Date: 20190815
  Transmission Date: 20200122
  Serious: No
  Sender: FDA-Public Use
  Company Number: None

PATIENT
  Age: 35 Year
  Sex: Male

DRUGS (4)
  1. GLATIRAMER 40MG PFS INJ  (12/BOX) [Suspect]
     Active Substance: GLATIRAMER
     Indication: MULTIPLE SCLEROSIS
     Dosage: OTHER
     Route: 058
     Dates: start: 20190725
  2. GABAPENTIN. [Concomitant]
     Active Substance: GABAPENTIN
  3. CARBEMAZEPINE [Concomitant]
     Active Substance: CARBAMAZEPINE
  4. EFFEXOR [Concomitant]
     Active Substance: VENLAFAXINE HYDROCHLORIDE

REACTIONS (2)
  - Vomiting [None]
  - Anal incontinence [None]

NARRATIVE: CASE EVENT DATE: 20190725
